FAERS Safety Report 13418839 (Version 1)
Quarter: 2017Q2

REPORT INFORMATION
  Report Type: Spontaneous
  Country: BR (occurrence: BR)
  Receive Date: 20170406
  Receipt Date: 20170406
  Transmission Date: 20170830
  Serious: Yes (Other)
  Sender: FDA-Public Use
  Company Number: BR-ROCHE-1917000

PATIENT
  Sex: Male

DRUGS (2)
  1. URSACOL [Concomitant]
     Active Substance: URSODIOL
  2. PULMOZYME [Suspect]
     Active Substance: DORNASE ALFA
     Indication: CYSTIC FIBROSIS
     Route: 065

REACTIONS (2)
  - Pulmonary congestion [Not Recovered/Not Resolved]
  - Seizure [Recovered/Resolved]
